FAERS Safety Report 8233708-0 (Version None)
Quarter: 2012Q1

REPORT INFORMATION
  Report Type: 
  Country: None (occurrence: None)
  Receive Date: 20120323
  Receipt Date: 20120323
  Transmission Date: 20120608
  Serious: Yes (Life-Threatening)
  Sender: FDA-Public Use
  Company Number: None

PATIENT
  Sex: Male
  Weight: 55.3 kg

DRUGS (9)
  1. CEFAZOLIN [Concomitant]
  2. BENADRYL [Concomitant]
  3. CISPLATIN [Concomitant]
  4. ONDANSETRON [Concomitant]
  5. CLARITIN [Concomitant]
  6. AMIFOSTINE [Suspect]
     Indication: DRY MOUTH
     Dosage: 500MG SC QD BEFORE RADIATION
     Route: 058
     Dates: start: 20120313
  7. PREVACID [Concomitant]
  8. VICODIN [Concomitant]
  9. MAGIC MOUTHWASH [Concomitant]

REACTIONS (7)
  - TREMOR [None]
  - RASH [None]
  - HEADACHE [None]
  - HYPOTENSION [None]
  - THROAT IRRITATION [None]
  - PYREXIA [None]
  - CHILLS [None]
